FAERS Safety Report 17022811 (Version 1)
Quarter: 2019Q4

REPORT INFORMATION
  Report Type: Spontaneous
  Country: US (occurrence: US)
  Receive Date: 20191112
  Receipt Date: 20191112
  Transmission Date: 20200122
  Serious: Yes (Other)
  Sender: FDA-Public Use
  Company Number: NVSC2019US026903

PATIENT
  Age: 28 Year
  Sex: Female
  Weight: 65.77 kg

DRUGS (4)
  1. LORAZEPAM. [Suspect]
     Active Substance: LORAZEPAM
     Dosage: UNK
     Route: 065
  2. LORAZEPAM. [Suspect]
     Active Substance: LORAZEPAM
     Dosage: 1 MG, UNKNOWN
     Route: 065
     Dates: end: 20191021
  3. BACLOFEN. [Suspect]
     Active Substance: BACLOFEN
     Indication: MUSCLE RELAXANT THERAPY
     Dosage: UNK
     Route: 065
  4. LORAZEPAM. [Suspect]
     Active Substance: LORAZEPAM
     Indication: PANIC ATTACK
     Dosage: UNK LESS THAN PRESCRIBED
     Route: 065

REACTIONS (16)
  - Pyrexia [Unknown]
  - Tremor [Unknown]
  - Insomnia [Unknown]
  - Pain [Unknown]
  - Confusional state [Unknown]
  - Drug dependence [Unknown]
  - Delirium [Recovered/Resolved]
  - Asthenopia [Recovered/Resolved]
  - Vision blurred [Unknown]
  - Drug withdrawal syndrome [Unknown]
  - Feeling abnormal [Unknown]
  - Nausea [Unknown]
  - Anxiety [Unknown]
  - Irritability [Unknown]
  - Fatigue [Unknown]
  - Panic attack [Unknown]

NARRATIVE: CASE EVENT DATE: 201910
